FAERS Safety Report 7534364-7 (Version None)
Quarter: 2011Q2

REPORT INFORMATION
  Report Type: 
  Country: None (occurrence: None)
  Receive Date: 20110608
  Receipt Date: 20110512
  Transmission Date: 20111010
  Serious: Yes (Hospitalization)
  Sender: FDA-Public Use
  Company Number: US-AMGEN-USASP2011024669

PATIENT
  Age: 63 Year
  Sex: Female

DRUGS (26)
  1. SPIRONOLACTONE [Concomitant]
  2. RESTASIS [Concomitant]
  3. NOVOLOG [Concomitant]
  4. VITAMINS                           /00067501/ [Concomitant]
  5. AZITHROMYCIN [Concomitant]
  6. CREON [Concomitant]
  7. XOLAIR [Concomitant]
  8. LEVOXYL [Concomitant]
  9. ZANAFLEX [Concomitant]
  10. ASPIRIN [Concomitant]
  11. ALTACE [Concomitant]
  12. AMARYL [Concomitant]
  13. CALCIUM CARBONATE [Concomitant]
  14. PROLIA [Suspect]
     Indication: OSTEOPOROSIS POSTMENOPAUSAL
     Dosage: 60 MG, Q6MO
     Dates: start: 20110103
  15. NEXIUM [Concomitant]
  16. SINGULAIR [Concomitant]
  17. PROVENTIL                          /00139501/ [Concomitant]
  18. OXYCONTIN [Concomitant]
  19. NITROGLYCERIN ACC [Concomitant]
  20. LANTUS [Concomitant]
  21. ALBUTEROL [Concomitant]
  22. CRESTOR [Concomitant]
  23. DAYPRO [Concomitant]
  24. ADVAIR DISKUS 100/50 [Concomitant]
  25. VOLTAREN [Concomitant]
  26. NITROLINGUAL [Concomitant]

REACTIONS (1)
  - PNEUMONIA [None]
